FAERS Safety Report 9559969 (Version 3)
Quarter: 2013Q4

REPORT INFORMATION
  Report Type: Spontaneous
  Country: US (occurrence: US)
  Receive Date: 20130927
  Receipt Date: 20131226
  Transmission Date: 20140711
  Serious: No
  Sender: FDA-Public Use
  Company Number: US-PFIZER INC-2013277167

PATIENT
  Sex: Female

DRUGS (3)
  1. LYRICA [Suspect]
     Indication: ARTHRALGIA
     Dosage: UNK (LOW DOSE), UNK
     Dates: start: 2013, end: 2013
  2. LYRICA [Suspect]
     Indication: MYALGIA
     Dosage: UNK (HIGH DOSE), UNK
     Dates: start: 2013, end: 2013
  3. LYRICA [Suspect]
     Indication: FIBROMYALGIA
     Dosage: UNK, 1X/DAY (1 DAILY)
     Route: 048

REACTIONS (7)
  - Visual impairment [Recovered/Resolved]
  - Somnolence [Unknown]
  - Local swelling [Recovered/Resolved]
  - Rash [Unknown]
  - Dizziness [Recovered/Resolved]
  - Pain [Recovered/Resolved]
  - Fatigue [Unknown]
